FAERS Safety Report 6268885-4 (Version None)
Quarter: 2009Q3

REPORT INFORMATION
  Report Type: 
  Country: None (occurrence: None)
  Receive Date: 20090715
  Receipt Date: 20090706
  Transmission Date: 20100115
  Serious: Yes (Other)
  Sender: FDA-Public Use
  Company Number: PHEH2008US09309

PATIENT
  Sex: Male

DRUGS (14)
  1. AREDIA [Suspect]
     Dosage: 90MG MONTHLY
     Dates: start: 19980114, end: 20020522
  2. ZOMETA [Suspect]
     Dosage: 4MG MONTHLY
     Dates: start: 20020619, end: 20050222
  3. METHADONE HCL [Concomitant]
  4. ROXICODONE [Concomitant]
  5. OXYCONTIN [Concomitant]
  6. DURAGESIC-100 [Concomitant]
  7. MORPHINE [Concomitant]
  8. AMBIEN [Concomitant]
  9. VIAGRA [Concomitant]
  10. CELEBREX [Concomitant]
  11. VIOXX [Concomitant]
  12. BUTALBITAL ACETAMINOPHEN AND CAFFEINE [Concomitant]
  13. PHENERGAN ^AVENTIS PHARMA^ [Concomitant]
     Dosage: 25MG
     Route: 048
  14. PHENERGAN ^AVENTIS PHARMA^ [Concomitant]
     Dosage: 25MG
     Route: 054

REACTIONS (20)
  - ANHEDONIA [None]
  - ANXIETY [None]
  - BONE DISORDER [None]
  - DEBRIDEMENT [None]
  - DENTAL CARIES [None]
  - DISABILITY [None]
  - DYSPEPSIA [None]
  - ENDODONTIC PROCEDURE [None]
  - HYPERBARIC OXYGEN THERAPY [None]
  - INFECTION [None]
  - INJURY [None]
  - LOOSE TOOTH [None]
  - OSTEONECROSIS [None]
  - PAIN [None]
  - PAIN IN JAW [None]
  - RIB FRACTURE [None]
  - STEM CELL TRANSPLANT [None]
  - TENDERNESS [None]
  - TOOTH EROSION [None]
  - TOOTH EXTRACTION [None]
